FAERS Safety Report 10489768 (Version 1)
Quarter: 2014Q4

REPORT INFORMATION
  Report Type: Spontaneous
  Country: JP (occurrence: JP)
  Receive Date: 20141002
  Receipt Date: 20141002
  Transmission Date: 20150528
  Serious: Yes (Death, Hospitalization)
  Sender: FDA-Public Use
  Company Number: JP-US-EMD SERONO, INC.-7322033

PATIENT
  Sex: Female

DRUGS (2)
  1. HMG                                /01277604/ [Concomitant]
     Indication: PRODUCT USED FOR UNKNOWN INDICATION
  2. SEROPHENE [Suspect]
     Active Substance: CLOMIPHENE CITRATE
     Indication: PRODUCT USED FOR UNKNOWN INDICATION

REACTIONS (4)
  - Shock haemorrhagic [Fatal]
  - Premature baby [Unknown]
  - Foetal malposition [Unknown]
  - Pulmonary hypoplasia [Fatal]
